FAERS Safety Report 17575116 (Version 2)
Quarter: 2020Q3

REPORT INFORMATION
  Report Type: Report from Study
  Country: DE (occurrence: DE)
  Receive Date: 20200324
  Receipt Date: 20200331
  Transmission Date: 20201105
  Serious: Yes (Hospitalization, Other)
  Sender: FDA-Public Use
  Company Number: NVSC2020DE075062

PATIENT
  Age: 57 Year
  Sex: Female

DRUGS (4)
  1. ATORVASTATIN [Concomitant]
     Active Substance: ATORVASTATIN
     Indication: HYPERCHOLESTEROLAEMIA
     Dosage: UNK
     Route: 065
     Dates: start: 20200316
  2. BROLUCIZUMAB. [Suspect]
     Active Substance: BROLUCIZUMAB
     Indication: RETINAL VEIN OCCLUSION
     Dosage: 6 MG
     Route: 031
     Dates: start: 20190920
  3. ASPIRIN. [Suspect]
     Active Substance: ASPIRIN
     Indication: TRICUSPID VALVE INCOMPETENCE
  4. ASPIRIN. [Suspect]
     Active Substance: ASPIRIN
     Indication: AORTIC VALVE INCOMPETENCE
     Dosage: 100 MG
     Route: 065
     Dates: start: 20200313

REACTIONS (1)
  - Retinal artery occlusion [Not Recovered/Not Resolved]

NARRATIVE: CASE EVENT DATE: 20200313
